FAERS Safety Report 6011666-7 (Version None)
Quarter: 2008Q4

REPORT INFORMATION
  Report Type: 
  Country: None (occurrence: None)
  Receive Date: 20081218
  Receipt Date: 20081205
  Transmission Date: 20090506
  Serious: No
  Sender: FDA-Public Use
  Company Number: US-BAYER-200814781BCC

PATIENT
  Age: 71 Year
  Sex: Female
  Weight: 59 kg

DRUGS (7)
  1. ALEVE [Suspect]
     Indication: ARTHRITIS
     Dosage: TOTAL DAILY DOSE: 440 MG  UNIT DOSE: 220 MG
     Route: 048
     Dates: start: 20081201, end: 20081205
  2. ALEVE [Suspect]
     Dosage: TOTAL DAILY DOSE: 440 MG  UNIT DOSE: 220 MG
     Route: 048
     Dates: start: 20080301, end: 20081130
  3. PLAVIX [Concomitant]
  4. LEVEMIR [Concomitant]
  5. WELCHOL [Concomitant]
  6. AZOR [Concomitant]
  7. NEXIUM [Concomitant]

REACTIONS (1)
  - OPERATIVE HAEMORRHAGE [None]
